FAERS Safety Report 7719604-3 (Version None)
Quarter: 2011Q3

REPORT INFORMATION
  Report Type: 
  Country: None (occurrence: None)
  Receive Date: 20110830
  Receipt Date: 20110816
  Transmission Date: 20111222
  Serious: Yes (Hospitalization)
  Sender: FDA-Public Use
  Company Number: DE-BRISTOL-MYERS SQUIBB COMPANY-15975246

PATIENT
  Age: 60 Year
  Sex: Male

DRUGS (2)
  1. GOLIMUMAB [Suspect]
     Dosage: 23NOV2010.
     Dates: start: 20100301
  2. ABATACEPT [Suspect]
     Dates: start: 20090909, end: 20100101

REACTIONS (1)
  - HEPATIC ENZYME INCREASED [None]
